FAERS Safety Report 5726467-4 (Version None)
Quarter: 2008Q2

REPORT INFORMATION
  Report Type: 
  Country: None (occurrence: None)
  Receive Date: 20080502
  Receipt Date: 20080501
  Transmission Date: 20081010
  Serious: Yes (Other)
  Sender: FDA-Public Use
  Company Number: B0518868A

PATIENT
  Sex: Male

DRUGS (5)
  1. AMOXICILLIN [Suspect]
     Indication: HELICOBACTER INFECTION
     Dosage: 1500MG PER DAY
     Route: 048
  2. RABEPRAZOLE SODIUM [Concomitant]
  3. CLARITHROMYCIN [Concomitant]
  4. PAROXETINE HCL [Concomitant]
  5. ALPRAZOLAM [Concomitant]

REACTIONS (2)
  - EXTRAPYRAMIDAL DISORDER [None]
  - PALPITATIONS [None]
